FAERS Safety Report 17676230 (Version 2)
Quarter: 2020Q2

REPORT INFORMATION
  Report Type: Report from Study
  Country: US (occurrence: US)
  Receive Date: 20200416
  Receipt Date: 20200612
  Transmission Date: 20200714
  Serious: No
  Sender: FDA-Public Use
  Company Number: US-BIOVITRUM-2020US1214

PATIENT
  Sex: Female

DRUGS (1)
  1. KINERET [Suspect]
     Active Substance: ANAKINRA
     Indication: RHEUMATOID ARTHRITIS
     Route: 058
     Dates: start: 20200219

REACTIONS (10)
  - Injection site erythema [Not Recovered/Not Resolved]
  - Insomnia [Unknown]
  - Nasopharyngitis [Unknown]
  - Pain [Unknown]
  - Product dose omission [Recovered/Resolved]
  - Osteoarthritis [Unknown]
  - Injection site urticaria [Unknown]
  - Injection site swelling [Not Recovered/Not Resolved]
  - Coronavirus infection [Unknown]
  - Injection site warmth [Not Recovered/Not Resolved]
